FAERS Safety Report 5627723-0 (Version None)
Quarter: 2008Q1

REPORT INFORMATION
  Report Type: 
  Country: None (occurrence: None)
  Receive Date: 20080215
  Receipt Date: 20080213
  Transmission Date: 20080703
  Serious: Yes (Death)
  Sender: FDA-Public Use
  Company Number: US-ASTRAZENECA-2008UW03005

PATIENT
  Sex: Female

DRUGS (3)
  1. NEXIUM [Suspect]
     Route: 048
     Dates: start: 20020101
  2. ASPIRIN [Concomitant]
  3. MANY DIFFERENT MEDICATIONS [Concomitant]

REACTIONS (1)
  - SEPSIS [None]
